FAERS Safety Report 13299343 (Version 9)
Quarter: 2017Q3

REPORT INFORMATION
  Report Type: Report from Study
  Country: CA (occurrence: CA)
  Receive Date: 20170306
  Receipt Date: 20170928
  Transmission Date: 20171127
  Serious: Yes (Other)
  Sender: FDA-Public Use
  Company Number: CA-PFIZER INC-2017095028

PATIENT
  Age: 52 Year
  Sex: Female

DRUGS (11)
  1. PANTOLOC [Suspect]
     Active Substance: PANTOPRAZOLE SODIUM
     Dosage: 40 MG, QD
     Dates: start: 2017, end: 20170326
  2. ENTYVIO [Suspect]
     Active Substance: VEDOLIZUMAB
     Indication: COLITIS ULCERATIVE
     Dosage: 300 MG, UNK
     Route: 042
     Dates: start: 20160607
  3. ENTYVIO [Suspect]
     Active Substance: VEDOLIZUMAB
     Dosage: 300 MG, CYCLIC(Q4WEEKS)
     Route: 042
     Dates: start: 20170424
  4. CALCIUM [Concomitant]
     Active Substance: CALCIUM
     Dosage: UNK, 1/WEEK
  5. PREDNISONE. [Concomitant]
     Active Substance: PREDNISONE
     Dosage: 40 MG, DECREASE EVERY 5 DAYS
     Dates: end: 20170326
  6. ENTYVIO [Suspect]
     Active Substance: VEDOLIZUMAB
     Dosage: 300 MG, CYCLIC(Q4WEEKS)
     Route: 042
     Dates: end: 20170523
  7. MESALAZINE [Concomitant]
     Active Substance: MESALAMINE
     Dosage: UNK
     Route: 048
  8. MESALAZINE [Concomitant]
     Active Substance: MESALAMINE
     Dosage: UNK
  9. ENTYVIO [Suspect]
     Active Substance: VEDOLIZUMAB
     Dosage: 300 MG, EVERY 6 WEEKS
     Route: 042
     Dates: start: 20170217
  10. ALENDRONATE SODIUM. [Concomitant]
     Active Substance: ALENDRONATE SODIUM
     Dosage: 70 MG, 1/WEEK
  11. METHYLPREDNISOLONE. [Concomitant]
     Active Substance: METHYLPREDNISOLONE
     Indication: PREMEDICATION
     Dosage: 80 MG, UNK
     Route: 042

REACTIONS (12)
  - Diarrhoea haemorrhagic [Not Recovered/Not Resolved]
  - Malaise [Unknown]
  - Dyspnoea [Not Recovered/Not Resolved]
  - Abdominal distension [Unknown]
  - Sneezing [Unknown]
  - Blood pressure decreased [Not Recovered/Not Resolved]
  - Pain [Unknown]
  - Frequent bowel movements [Unknown]
  - Drug ineffective [Unknown]
  - Rhinorrhoea [Unknown]
  - Abdominal pain [Unknown]
  - Flatulence [Unknown]

NARRATIVE: CASE EVENT DATE: 2016
